FAERS Safety Report 6026778-1 (Version None)
Quarter: 2009Q1

REPORT INFORMATION
  Report Type: 
  Country: None (occurrence: None)
  Receive Date: 20090105
  Receipt Date: 20081230
  Transmission Date: 20090719
  Serious: Yes (Death)
  Sender: FDA-Public Use
  Company Number: SA-JNJFOC-20090100010

PATIENT
  Sex: Male

DRUGS (3)
  1. HALDOL [Suspect]
     Indication: DRUG TOXICITY
     Route: 030
  2. AMPHETAMINE SULFATE [Suspect]
     Indication: DRUG USE FOR UNKNOWN INDICATION
     Route: 065
  3. VALIUM [Suspect]
     Indication: DRUG USE FOR UNKNOWN INDICATION
     Route: 042

REACTIONS (2)
  - COMA [None]
  - DEATH [None]
